FAERS Safety Report 8088815-2 (Version None)
Quarter: 2012Q1

REPORT INFORMATION
  Report Type: 
  Country: None (occurrence: None)
  Receive Date: 20120128
  Receipt Date: 20110502
  Transmission Date: 20120608
  Serious: No
  Sender: FDA-Public Use
  Company Number: US-ABBOTT-11P-163-0722745-00

PATIENT
  Sex: Female
  Weight: 70.37 kg

DRUGS (4)
  1. FOLIC ACID [Concomitant]
     Indication: VITAMIN SUPPLEMENTATION
  2. HUMIRA [Suspect]
     Indication: RHEUMATOID ARTHRITIS
     Dates: start: 20110420
  3. PREDNISONE TAB [Concomitant]
     Indication: RHEUMATOID ARTHRITIS
  4. PLAQUENIL [Concomitant]
     Indication: RHEUMATOID ARTHRITIS

REACTIONS (5)
  - INJECTION SITE PAIN [None]
  - DIZZINESS [None]
  - DEPRESSION [None]
  - INJECTION SITE PRURITUS [None]
  - INJECTION SITE SWELLING [None]
